FAERS Safety Report 6741239-X (Version None)
Quarter: 2010Q2

REPORT INFORMATION
  Report Type: 
  Country: None (occurrence: None)
  Receive Date: 20100526
  Receipt Date: 20100517
  Transmission Date: 20101027
  Serious: Yes (Hospitalization)
  Sender: FDA-Public Use
  Company Number: FR-JNJFOC-20100506860

PATIENT
  Sex: Female

DRUGS (6)
  1. DURAGESIC-100 [Suspect]
     Indication: DRUG USE FOR UNKNOWN INDICATION
     Route: 062
  2. LORAZEPAM [Suspect]
     Indication: INSOMNIA
     Route: 048
  3. DIFFU K [Suspect]
     Indication: HYPOKALAEMIA
     Route: 048
  4. NEURONTIN [Suspect]
     Indication: PAIN
     Route: 048
  5. PANTOPRAZOLE SODIUM [Suspect]
     Indication: DRUG USE FOR UNKNOWN INDICATION
     Route: 048
  6. LOVENOX [Suspect]
     Indication: PROPHYLAXIS
     Route: 058

REACTIONS (3)
  - ORAL DISCOMFORT [None]
  - PRURITUS [None]
  - RASH MACULO-PAPULAR [None]
